FAERS Safety Report 10967005 (Version 3)
Quarter: 2015Q3

REPORT INFORMATION
  Report Type: Spontaneous
  Country: IT (occurrence: IT)
  Receive Date: 20150330
  Receipt Date: 20150807
  Transmission Date: 20151125
  Serious: Yes (Hospitalization)
  Sender: FDA-Public Use
  Company Number: IT-009507513-1503ITA013263

PATIENT
  Age: 87 Year
  Sex: Male

DRUGS (4)
  1. AMARYL [Concomitant]
     Active Substance: GLIMEPIRIDE
     Indication: DIABETES MELLITUS
     Dosage: 3 MG (1 TABLET), DAILY
     Route: 048
  2. JANUMET [Suspect]
     Active Substance: METFORMIN HYDROCHLORIDE\SITAGLIPTIN PHOSPHATE
     Dosage: 0.5 DOSE UNIT, DAILY
     Route: 048
     Dates: start: 20150224
  3. JANUMET [Suspect]
     Active Substance: METFORMIN HYDROCHLORIDE\SITAGLIPTIN PHOSPHATE
     Dosage: 0.5 DOSE UNIT, TOTAL
     Route: 048
     Dates: start: 20150222, end: 20150222
  4. JANUMET [Suspect]
     Active Substance: METFORMIN HYDROCHLORIDE\SITAGLIPTIN PHOSPHATE
     Indication: DIABETES MELLITUS
     Dosage: 0.5 DOSE UNIT, DAILY
     Route: 048
     Dates: end: 20150221

REACTIONS (2)
  - Medication error [Recovered/Resolved]
  - Hypoglycaemia [Recovered/Resolved]

NARRATIVE: CASE EVENT DATE: 20150222
